FAERS Safety Report 24363175 (Version 1)
Quarter: 2024Q3

REPORT INFORMATION
  Report Type: Spontaneous
  Country: CN (occurrence: CN)
  Receive Date: 20240925
  Receipt Date: 20240925
  Transmission Date: 20241016
  Serious: Yes (Other)
  Sender: ELI LILLY AND CO
  Company Number: CN-Merck Healthcare KGaA-2024050137

PATIENT
  Age: 57 Year
  Sex: Female
  Weight: 81 kg

DRUGS (4)
  1. ERBITUX [Suspect]
     Active Substance: CETUXIMAB
     Indication: Colon cancer
     Dosage: 900 MG, UNKNOWN
     Route: 041
     Dates: start: 20240911, end: 20240911
  2. FLUOROURACIL [Suspect]
     Active Substance: FLUOROURACIL
     Indication: Colon cancer
     Dosage: 4.5 G, DAILY
     Route: 042
     Dates: start: 20240912, end: 20240912
  3. FLUOROURACIL [Suspect]
     Active Substance: FLUOROURACIL
     Dosage: 0.75 G, DAILY
     Route: 042
     Dates: start: 20240912, end: 20240914
  4. IRINOTECAN HYDROCHLORIDE [Suspect]
     Active Substance: IRINOTECAN HYDROCHLORIDE
     Indication: Colon cancer
     Dosage: 330 MG, DAILY
     Route: 041
     Dates: start: 20240912, end: 20240912

REACTIONS (1)
  - Myelosuppression [Unknown]

NARRATIVE: CASE EVENT DATE: 20240914
